FAERS Safety Report 8781271 (Version 1)
Quarter: 2012Q4

REPORT INFORMATION
  Report Type: 
  Country: AR (occurrence: AR)
  Receive Date: 20120913
  Receipt Date: 20120913
  Transmission Date: 20130627
  Serious: Yes (Other)
  Sender: FDA-Public Use
  Company Number: PHHY2012AR079322

PATIENT
  Sex: Female

DRUGS (1)
  1. DIOVAN [Suspect]
     Indication: HYPERTENSION
     Dates: start: 2011

REACTIONS (3)
  - Maculopathy [Not Recovered/Not Resolved]
  - Visual impairment [Unknown]
  - Blood pressure fluctuation [Not Recovered/Not Resolved]
